FAERS Safety Report 21321136 (Version 1)
Quarter: 2022Q3

REPORT INFORMATION
  Report Type: Report from Study
  Country: CO (occurrence: CO)
  Receive Date: 20220912
  Receipt Date: 20220912
  Transmission Date: 20221026
  Serious: Yes (Other)
  Sender: FDA-Public Use
  Company Number: CO-JNJFOC-20220909561

PATIENT
  Age: 75 Year
  Sex: Male
  Weight: 66 kg

DRUGS (1)
  1. DARZALEX [Suspect]
     Active Substance: DARATUMUMAB
     Indication: Plasma cell myeloma
     Route: 042
     Dates: start: 20220902

REACTIONS (4)
  - Respiratory distress [Unknown]
  - Infusion related reaction [Unknown]
  - Chills [Unknown]
  - Erythema [Unknown]

NARRATIVE: CASE EVENT DATE: 20220902
